FAERS Safety Report 5866786-4 (Version None)
Quarter: 2008Q3

REPORT INFORMATION
  Report Type: 
  Country: None (occurrence: None)
  Receive Date: 20080828
  Receipt Date: 20080828
  Transmission Date: 20090109
  Serious: Yes (Other)
  Sender: FDA-Public Use
  Company Number: None

PATIENT
  Age: 84 Year
  Sex: Female
  Weight: 68.0396 kg

DRUGS (1)
  1. ROZEREM [Suspect]
     Indication: SLEEP DISORDER THERAPY
     Dosage: 1 TABLET 8MG NIGHT TIME PO
     Route: 048
     Dates: start: 20080826, end: 20080826

REACTIONS (8)
  - ASTHENIA [None]
  - DISORIENTATION [None]
  - DYSPNOEA [None]
  - FACE OEDEMA [None]
  - FATIGUE [None]
  - GAIT DISTURBANCE [None]
  - MALAISE [None]
  - SOMNOLENCE [None]
